FAERS Safety Report 7512821-7 (Version None)
Quarter: 2011Q2

REPORT INFORMATION
  Report Type: 
  Country: None (occurrence: None)
  Receive Date: 20110520
  Receipt Date: 20110511
  Transmission Date: 20111010
  Serious: Yes (Death)
  Sender: FDA-Public Use
  Company Number: JPI-P-014813

PATIENT
  Age: 66 Year
  Sex: Female

DRUGS (3)
  1. XYREM [Suspect]
     Indication: PRODUCT USED FOR UNKNOWN INDICATION
     Dosage: 4.5 GM (2.25 GM, 2 IN 1 D), ORAL; 5 GM (2.5 GM, 2 IN 1 D), ORAL; 9 GM (4.5 GM, 2 IN 1 D), ORAL
     Route: 048
     Dates: start: 20060517, end: 20070104
  2. XYREM [Suspect]
     Indication: PRODUCT USED FOR UNKNOWN INDICATION
     Dosage: 4.5 GM (2.25 GM, 2 IN 1 D), ORAL; 5 GM (2.5 GM, 2 IN 1 D), ORAL; 9 GM (4.5 GM, 2 IN 1 D), ORAL
     Route: 048
     Dates: start: 20050531, end: 20060516
  3. XYREM [Suspect]
     Indication: PRODUCT USED FOR UNKNOWN INDICATION
     Dosage: 4.5 GM (2.25 GM, 2 IN 1 D), ORAL; 5 GM (2.5 GM, 2 IN 1 D), ORAL; 9 GM (4.5 GM, 2 IN 1 D), ORAL
     Route: 048
     Dates: start: 20070105, end: 20071227

REACTIONS (1)
  - DEATH [None]
